FAERS Safety Report 7636750-3 (Version None)
Quarter: 2011Q3

REPORT INFORMATION
  Report Type: 
  Country: None (occurrence: None)
  Receive Date: 20110726
  Receipt Date: 20110718
  Transmission Date: 20111222
  Serious: Yes (Hospitalization, Other)
  Sender: FDA-Public Use
  Company Number: US-ABBOTT-11P-163-0840004-00

PATIENT
  Age: 52 Year
  Sex: Female

DRUGS (18)
  1. DIGOXIN [Concomitant]
     Indication: PULMONARY ARTERIAL HYPERTENSION
  2. OMEPRAZOLE [Concomitant]
     Indication: DYSPEPSIA
  3. METOPROLOL TARTRATE [Concomitant]
     Indication: PALPITATIONS
  4. REVATIO [Concomitant]
     Indication: PULMONARY ARTERIAL HYPERTENSION
  5. IMODIUM [Concomitant]
     Indication: DIARRHOEA
  6. POTASSIUM CHLORIDE [Concomitant]
     Indication: PULMONARY HYPERTENSION
  7. ATIVAN [Concomitant]
     Indication: SLEEP DISORDER
  8. VERSED [Concomitant]
     Indication: CATHETERISATION CARDIAC
  9. LIDOCAINE [Concomitant]
     Indication: ANAESTHESIA
  10. FENOFIBRATE [Concomitant]
     Indication: PULMONARY ARTERIAL HYPERTENSION
  11. NIASPAN [Suspect]
     Indication: HYPERLIPIDAEMIA
     Route: 048
     Dates: start: 20110401, end: 20110501
  12. FLOLAN [Concomitant]
     Indication: PULMONARY ARTERIAL HYPERTENSION
  13. BUMEX [Concomitant]
     Indication: PULMONARY HYPERTENSION
  14. SYNTHROID [Concomitant]
     Indication: HYPOTHYROIDISM
  15. NIASPAN [Suspect]
     Indication: HYPERLIPIDAEMIA
     Route: 048
     Dates: start: 20110401, end: 20110520
  16. VICODIN [Concomitant]
     Indication: PAIN IN EXTREMITY
  17. CICLETANINE HYDROCHLORIDE [Suspect]
     Indication: PULMONARY ARTERIAL HYPERTENSION
     Route: 048
     Dates: start: 20101019
  18. PAXIL [Concomitant]
     Indication: DEPRESSION

REACTIONS (2)
  - PALPITATIONS [None]
  - CHEST PAIN [None]
